FAERS Safety Report 23228525 (Version 1)
Quarter: 2023Q4

REPORT INFORMATION
  Report Type: Report from Study
  Country: CZ (occurrence: CZ)
  Receive Date: 20231125
  Receipt Date: 20231125
  Transmission Date: 20240110
  Serious: Yes (Other)
  Sender: FDA-Public Use
  Company Number: CZ-BAYER-2023P003440

PATIENT
  Age: 29 Year
  Sex: Female
  Weight: 61 kg

DRUGS (2)
  1. MIRENA [Suspect]
     Active Substance: LEVONORGESTREL
     Indication: Contraception
     Dosage: 20?G/DAY
     Route: 015
     Dates: start: 20201211, end: 20220401
  2. CHOLECALCIFEROL [Concomitant]
     Active Substance: CHOLECALCIFEROL
     Dosage: UNK
     Dates: start: 20220909

REACTIONS (15)
  - Autoimmune thyroiditis [Recovered/Resolved]
  - Malaise [Recovered/Resolved]
  - Gastrooesophageal reflux disease [Recovered/Resolved]
  - Fatigue [Recovered/Resolved]
  - Gastrooesophageal reflux disease [None]
  - Fatigue [Recovering/Resolving]
  - Fatigue [None]
  - Apathy [Recovered/Resolved]
  - Depression [Recovered/Resolved]
  - Decreased appetite [Recovered/Resolved]
  - Blood thyroid stimulating hormone increased [None]
  - Blood thyroid stimulating hormone increased [None]
  - Thyroxine increased [None]
  - Vaginal haemorrhage [Recovered/Resolved]
  - Irritability [None]

NARRATIVE: CASE EVENT DATE: 20210301
